FAERS Safety Report 5006614-2 (Version None)
Quarter: 2006Q2

REPORT INFORMATION
  Report Type: 
  Country: None (occurrence: None)
  Receive Date: 20060519
  Receipt Date: 20060508
  Transmission Date: 20061013
  Serious: Yes (Other)
  Sender: FDA-Public Use
  Company Number: NL-GLAXOSMITHKLINE-B0423734A

PATIENT
  Age: 5 Year
  Sex: Female

DRUGS (4)
  1. SALBUTAMOL SULPHATE [Suspect]
     Indication: ASTHMA
     Dosage: 100MCG UNKNOWN
  2. IPRATROPIUM BROMIDE [Suspect]
     Indication: ASTHMA
  3. FLIXOTIDE [Suspect]
     Dosage: 2U PER DAY
  4. SINGULAIR [Concomitant]
     Dosage: 2U PER DAY

REACTIONS (3)
  - ASTHMA [None]
  - MICTURITION DISORDER [None]
  - RESIDUAL URINE VOLUME [None]
